FAERS Safety Report 7654923-0 (Version None)
Quarter: 2011Q3

REPORT INFORMATION
  Report Type: 
  Country: None (occurrence: None)
  Receive Date: 20110804
  Receipt Date: 20110728
  Transmission Date: 20111222
  Serious: Yes (Other)
  Sender: FDA-Public Use
  Company Number: DE-SHIRE-SPV1-2011-00816

PATIENT
  Age: 10 Year
  Sex: Male
  Weight: 33.7 kg

DRUGS (2)
  1. METHYLPHENIDATE HCL [Suspect]
     Indication: ATTENTION DEFICIT/HYPERACTIVITY DISORDER
     Dosage: 20 MG, 1X/DAY:QD
     Route: 048
     Dates: start: 20101129, end: 20110415
  2. METHYLPHENIDATE HCL [Suspect]
     Dosage: 10 MG, 1X/DAY:QD
     Route: 048
     Dates: start: 20110622

REACTIONS (1)
  - BUNDLE BRANCH BLOCK RIGHT [None]
